FAERS Safety Report 13036414 (Version 2)
Quarter: 2016Q4

REPORT INFORMATION
  Report Type: Spontaneous
  Country: US (occurrence: US)
  Receive Date: 20161216
  Receipt Date: 20161227
  Transmission Date: 20170207
  Serious: Yes (Life-Threatening, Hospitalization)
  Sender: FDA-Public Use
  Company Number: US-ABBVIE-16P-163-1813549-00

PATIENT

DRUGS (2)
  1. VALPROIC ACID. [Suspect]
     Active Substance: VALPROIC ACID
     Indication: BIPOLAR DISORDER
     Route: 065
  2. MEROPENEM. [Interacting]
     Active Substance: MEROPENEM
     Indication: PRODUCT USED FOR UNKNOWN INDICATION
     Route: 065

REACTIONS (8)
  - Pneumonia aspiration [Unknown]
  - Overdose [Recovering/Resolving]
  - Drug level increased [Recovering/Resolving]
  - Coma [Recovered/Resolved]
  - Drug interaction [Unknown]
  - Unresponsive to stimuli [Unknown]
  - Off label use [Unknown]
  - Toxicity to various agents [Recovered/Resolved]
